FAERS Safety Report 13129000 (Version 1)
Quarter: 2017Q1

REPORT INFORMATION
  Report Type: Spontaneous
  Country: US (occurrence: US)
  Receive Date: 20170117
  Receipt Date: 20170117
  Transmission Date: 20170428
  Serious: No
  Sender: FDA-Public Use
  Company Number: None

PATIENT
  Age: 38 Year
  Sex: Female

DRUGS (1)
  1. GLATOPA [Suspect]
     Active Substance: GLATIRAMER ACETATE
     Indication: MULTIPLE SCLEROSIS
     Route: 058
     Dates: start: 20160701

REACTIONS (5)
  - Feeling hot [None]
  - Injection site pruritus [None]
  - Dyspnoea [None]
  - Erythema [None]
  - Swelling face [None]

NARRATIVE: CASE EVENT DATE: 20170116
